FAERS Safety Report 15067048 (Version 1)
Quarter: 2018Q2

REPORT INFORMATION
  Report Type: Spontaneous
  Country: US (occurrence: US)
  Receive Date: 20180606
  Receipt Date: 20180606
  Transmission Date: 20180711
  Serious: Yes (Hospitalization)
  Sender: FDA-Public Use
  Company Number: None

PATIENT
  Age: 11 Year
  Sex: Female
  Weight: 67.5 kg

DRUGS (4)
  1. GUANFACINE ER 3MG TABLETS [Suspect]
     Active Substance: GUANFACINE
     Indication: IMPULSIVE BEHAVIOUR
     Dosage: ?          QUANTITY:1 DF DOSAGE FORM;?
     Route: 048
  2. MIDOL [Concomitant]
     Active Substance: IBUPROFEN
  3. IBU [Concomitant]
     Active Substance: IBUPROFEN
  4. VITAMIN D [Concomitant]
     Active Substance: CHOLECALCIFEROL

REACTIONS (10)
  - Tongue biting [None]
  - Palpitations [None]
  - Dizziness [None]
  - Abdominal pain upper [None]
  - Fatigue [None]
  - Headache [None]
  - Chest discomfort [None]
  - Paraesthesia oral [None]
  - Loss of consciousness [None]
  - Irritability [None]

NARRATIVE: CASE EVENT DATE: 20180604
